FAERS Safety Report 5490935-3 (Version None)
Quarter: 2007Q4

REPORT INFORMATION
  Report Type: 
  Country: None (occurrence: None)
  Receive Date: 20071019
  Receipt Date: 20071010
  Transmission Date: 20080405
  Serious: Yes (Disabling, Other)
  Sender: FDA-Public Use
  Company Number: PT-PFIZER INC-2007086284

PATIENT
  Sex: Female
  Weight: 56 kg

DRUGS (8)
  1. DIFLUCAN [Suspect]
     Indication: MUCOSAL INFLAMMATION
     Dosage: DAILY DOSE:50MG
     Route: 048
  2. PACLITAXEL [Interacting]
     Indication: OVARIAN EPITHELIAL CANCER
     Dosage: TEXT:6MG/ML  EVERY 3 WEEKS TDD:270MG
     Dates: start: 20070426, end: 20070724
  3. CARBOPLATIN [Concomitant]
     Indication: OVARIAN CANCER
  4. DICYCLOMINE HCL [Concomitant]
     Indication: NAUSEA
     Route: 048
  5. METOCLOPRAMIDE HYDROCHLORIDE [Concomitant]
     Indication: NAUSEA
     Route: 048
  6. DOXYLAMINE SUCCINATE [Concomitant]
     Indication: NAUSEA
     Route: 048
  7. PYRIDOXINE HYDROCHLORIDE [Concomitant]
     Indication: NAUSEA
     Route: 048
  8. DOSULEPIN HYDROCHLORIDE [Concomitant]
     Indication: DEPRESSION
     Route: 048

REACTIONS (2)
  - DRUG INTERACTION [None]
  - TOXIC SKIN ERUPTION [None]
